FAERS Safety Report 7898539-X (Version None)
Quarter: 2011Q4

REPORT INFORMATION
  Report Type: 
  Country: None (occurrence: None)
  Receive Date: 20111103
  Receipt Date: 20111021
  Transmission Date: 20120403
  Serious: Yes (Death, Life-Threatening, Hospitalization)
  Sender: FDA-Public Use
  Company Number: 2011PV000059

PATIENT
  Age: 61 Year
  Sex: Male

DRUGS (2)
  1. DEXAMETHASONE [Concomitant]
  2. DEPOCYT [Suspect]
     Dosage: 50 MG;1X;INTH
     Route: 037
     Dates: start: 20110715, end: 20110715

REACTIONS (2)
  - COMA [None]
  - BONE MARROW FAILURE [None]
